FAERS Safety Report 14939018 (Version 3)
Quarter: 2018Q2

REPORT INFORMATION
  Report Type: Spontaneous
  Country: DE (occurrence: DE)
  Receive Date: 20180525
  Receipt Date: 20180622
  Transmission Date: 20180711
  Serious: Yes (Hospitalization)
  Sender: FDA-Public Use
  Company Number: DE-PFIZER INC-2018209775

PATIENT
  Age: 54 Year
  Sex: Male
  Weight: 69.3 kg

DRUGS (8)
  1. PANTOPRAZOL [Concomitant]
     Active Substance: PANTOPRAZOLE SODIUM
     Dosage: 40 MG, 1-0-0-0, TABLETTEN
     Route: 048
  2. CARBIMAZOL [Concomitant]
     Active Substance: CARBIMAZOLE
     Dosage: 10 MG, 1-0-0-0, TABLETTEN
     Route: 048
  3. CALCIUM FOLINATE [Suspect]
     Active Substance: LEUCOVORIN CALCIUM
     Dosage: SCHEME, INJECTION/INFUSION SOLUTION
     Route: 042
  4. PREDNISOLONE. [Concomitant]
     Active Substance: PREDNISOLONE
     Dosage: 2.5 MG, 1-0-0-0, TABLETTEN
     Route: 048
  5. FLUOROURACIL. [Suspect]
     Active Substance: FLUOROURACIL
     Dosage: SCHEME, INJECTION/INFUSION SOLUTION
     Route: 042
  6. PROPRANOLOL [Concomitant]
     Active Substance: PROPRANOLOL HYDROCHLORIDE
     Dosage: 10 MG, 1-0-0-0, TABLETTEN
     Route: 048
  7. CISPLATIN. [Suspect]
     Active Substance: CISPLATIN
     Dosage: SCHEME, INJECTION/INFUSION SOLUTION
     Route: 042
  8. FOLSAN [Concomitant]
     Active Substance: FOLIC ACID
     Dosage: 5 MG, 1-0-0-0, TABLETTEN
     Route: 048

REACTIONS (6)
  - Chills [Unknown]
  - Pyrexia [Unknown]
  - General physical health deterioration [Unknown]
  - Pallor [Unknown]
  - Cough [Unknown]
  - Diarrhoea [Unknown]
